FAERS Safety Report 4996938-7 (Version None)
Quarter: 2006Q2

REPORT INFORMATION
  Report Type: 
  Country: None (occurrence: None)
  Receive Date: 20060509
  Receipt Date: 20060428
  Transmission Date: 20061013
  Serious: Yes (Hospitalization)
  Sender: FDA-Public Use
  Company Number: JP-GLAXOSMITHKLINE-B0422890A

PATIENT
  Age: 72 Year
  Sex: Female

DRUGS (4)
  1. TOPOTECAN [Suspect]
     Indication: OVARIAN CANCER
     Route: 042
     Dates: start: 20060403, end: 20060407
  2. CODEINE PHOSPHATE [Concomitant]
     Dates: start: 20060417, end: 20060419
  3. CARBOCISTEINE [Concomitant]
     Dates: start: 20060417, end: 20060419
  4. GLUCOSE + ELECTROLYTES [Concomitant]
     Dates: start: 20060419, end: 20060419

REACTIONS (6)
  - ANOREXIA [None]
  - COUGH [None]
  - DEHYDRATION [None]
  - MALAISE [None]
  - UPPER RESPIRATORY TRACT INFECTION [None]
  - VOMITING [None]
